FAERS Safety Report 9300727 (Version 1)
Quarter: 2013Q2

REPORT INFORMATION
  Report Type: Spontaneous
  Country: BR (occurrence: BR)
  Receive Date: 20130521
  Receipt Date: 20130521
  Transmission Date: 20140414
  Serious: Yes (Other)
  Sender: FDA-Public Use
  Company Number: BR-PFIZER INC-2013150637

PATIENT
  Age: 79 Year
  Sex: Female
  Weight: 60 kg

DRUGS (3)
  1. FRONTAL [Suspect]
     Indication: ANXIETY
     Dosage: UNK
     Route: 048
  2. FRONTAL [Suspect]
     Dosage: UNK, IN ALTERNATE DAYS
     Route: 048
     Dates: start: 201301
  3. RITMONEURAN (ADONIS VERNALIS/ERYTHRINA MULUNGU/PASSIFLORA INCARNATA) [Concomitant]
     Indication: ANXIETY
     Dosage: 1 TABLET OF UNSPECIFIED DOSAGES IN THE MORNING
     Dates: start: 2013

REACTIONS (5)
  - Labyrinthitis [Unknown]
  - Fungal infection [Unknown]
  - Eructation [Recovered/Resolved]
  - Nausea [Recovered/Resolved]
  - Anxiety [Recovered/Resolved]
